FAERS Safety Report 8102969-0 (Version None)
Quarter: 2012Q1

REPORT INFORMATION
  Report Type: 
  Country: None (occurrence: None)
  Receive Date: 20120127
  Receipt Date: 20120116
  Transmission Date: 20120608
  Serious: Yes (Death)
  Sender: FDA-Public Use
  Company Number: 1164950

PATIENT
  Age: 67 Year
  Sex: Female
  Weight: 29.4838 kg

DRUGS (7)
  1. SEVOFLURANE [Concomitant]
  2. AUGMENTIN '125' [Concomitant]
  3. (DEXAMETHASONE) [Concomitant]
  4. VANCOMYCIN HYDROCHLORIDE [Suspect]
     Indication: PROPHYLAXIS
     Dosage: 1 G GRAM(S), INTRAVENOUS (NOT OTHERWISE SPECIFIED)
     Route: 042
     Dates: start: 20111109, end: 20111109
  5. VECURONIUM BROMIDE [Concomitant]
  6. ROCURONIUM BROMIDE [Concomitant]
  7. ONDANSETRON [Concomitant]

REACTIONS (2)
  - CARDIO-RESPIRATORY ARREST [None]
  - ANAPHYLACTIC REACTION [None]
